FAERS Safety Report 10073616 (Version 9)
Quarter: 2017Q1

REPORT INFORMATION
  Report Type: Report from Study
  Country: AR (occurrence: AR)
  Receive Date: 20140411
  Receipt Date: 20170105
  Transmission Date: 20170428
  Serious: Yes (Life-Threatening, Hospitalization, Other)
  Sender: FDA-Public Use
  Company Number: PHHY2014AR044349

PATIENT
  Age: 64 Year
  Sex: Male
  Weight: 64 kg

DRUGS (17)
  1. TACROLIMUS. [Concomitant]
     Active Substance: TACROLIMUS
     Dosage: 5 MG, UNK
     Route: 065
     Dates: start: 20130904
  2. MEPREDNISONE [Concomitant]
     Active Substance: MEPREDNISONE
     Indication: PROPHYLAXIS AGAINST TRANSPLANT REJECTION
     Dosage: 30 MG, UNK
     Route: 065
     Dates: start: 20130904
  3. VALGANCICLOVIR. [Concomitant]
     Active Substance: VALGANCICLOVIR
     Indication: CYTOMEGALOVIRUS INFECTION
     Dosage: 450 MG, DAILY
     Route: 048
     Dates: start: 20140311, end: 20140401
  4. ITRACONAZOLE. [Concomitant]
     Active Substance: ITRACONAZOLE
     Indication: SKIN LESION
     Dosage: 400 MG, UNK
     Route: 065
     Dates: start: 20140102
  5. MYFORTIC [Suspect]
     Active Substance: MYCOPHENOLATE SODIUM
     Indication: RENAL TRANSPLANT
     Dosage: 1440 MG, QD
     Route: 048
     Dates: start: 20130409
  6. MYFORTIC [Suspect]
     Active Substance: MYCOPHENOLATE SODIUM
     Dosage: 720 MG, UNK
     Route: 048
     Dates: end: 20140328
  7. TACROLIMUS. [Concomitant]
     Active Substance: TACROLIMUS
     Dosage: 0.5 MG, UNK
     Route: 065
     Dates: start: 20130916
  8. MEPREDNISONE [Concomitant]
     Active Substance: MEPREDNISONE
     Dosage: 20 MG, UNK
     Route: 065
     Dates: start: 20130904
  9. ITRACONAZOLE. [Concomitant]
     Active Substance: ITRACONAZOLE
     Indication: ANTIFUNGAL TREATMENT
  10. MYFORTIC [Suspect]
     Active Substance: MYCOPHENOLATE SODIUM
     Indication: PROPHYLAXIS AGAINST TRANSPLANT REJECTION
     Dosage: 1440 MG, QD
     Route: 048
     Dates: start: 20130904
  11. MYFORTIC [Suspect]
     Active Substance: MYCOPHENOLATE SODIUM
     Dosage: 360 MG, Q12H
     Route: 048
     Dates: start: 20130928
  12. MYFORTIC [Suspect]
     Active Substance: MYCOPHENOLATE SODIUM
     Dosage: UNK
     Route: 048
     Dates: start: 20140519
  13. VALGANCICLOVIR. [Concomitant]
     Active Substance: VALGANCICLOVIR
     Indication: SOFT TISSUE INFECTION
  14. TACROLIMUS. [Concomitant]
     Active Substance: TACROLIMUS
     Indication: PROPHYLAXIS AGAINST TRANSPLANT REJECTION
     Dosage: 3 MG, UNK
     Route: 065
     Dates: start: 20130904
  15. TACROLIMUS. [Concomitant]
     Active Substance: TACROLIMUS
     Dosage: 5 MG, UNK
     Route: 065
     Dates: start: 20130928
  16. VALGANCICLOVIR. [Concomitant]
     Active Substance: VALGANCICLOVIR
     Indication: PSEUDOMONAS INFECTION
  17. MEPREDNISONE [Concomitant]
     Active Substance: MEPREDNISONE
     Dosage: 8 MG, UNK
     Route: 065
     Dates: start: 20130928

REACTIONS (26)
  - Hyperkalaemia [Recovered/Resolved]
  - Urinary tract infection pseudomonal [Recovered/Resolved]
  - Haematocrit decreased [Unknown]
  - Urinary tract infection [Recovered/Resolved]
  - Muscular weakness [Unknown]
  - Leukopenia [Recovered/Resolved]
  - Pyrexia [Recovered/Resolved]
  - Klebsiella infection [Recovered/Resolved]
  - Leukopenia [Recovered/Resolved]
  - Enterobacter infection [Recovered/Resolved]
  - Fungal infection [Recovering/Resolving]
  - Cytomegalovirus infection [Recovered/Resolved]
  - Pyrexia [Recovered/Resolved]
  - Dysuria [Recovered/Resolved]
  - Fungal infection [Recovered/Resolved]
  - Urinary tract infection [Recovered/Resolved]
  - Enterobacter sepsis [Recovered/Resolved]
  - Urinary tract infection [Recovered/Resolved]
  - Diarrhoea [Recovered/Resolved]
  - Cytomegalovirus infection [Recovered/Resolved]
  - Phaehyphomycosis [Recovering/Resolving]
  - Leukopenia [Recovered/Resolved]
  - Strongyloidiasis [Recovered/Resolved]
  - Febrile neutropenia [Recovered/Resolved]
  - Soft tissue infection [Recovered/Resolved]
  - Bladder dysfunction [Recovered/Resolved]

NARRATIVE: CASE EVENT DATE: 20130911
